FAERS Safety Report 25867887 (Version 2)
Quarter: 2025Q4

REPORT INFORMATION
  Report Type: Spontaneous
  Country: US (occurrence: US)
  Receive Date: 20251001
  Receipt Date: 20251017
  Transmission Date: 20260118
  Serious: Yes (Death, Hospitalization, Other)
  Sender: AUROBINDO
  Company Number: US-AUROBINDO-AUR-APL-2025-048948

PATIENT
  Age: 43 Year
  Sex: Male

DRUGS (4)
  1. VORICONAZOLE [Suspect]
     Active Substance: VORICONAZOLE
     Indication: Aspergillus infection
     Dosage: UNK
     Route: 065
  2. SULFAMETHOXAZOLE\TRIMETHOPRIM [Concomitant]
     Active Substance: SULFAMETHOXAZOLE\TRIMETHOPRIM
     Indication: Toxoplasmosis prophylaxis
     Dosage: UNK
     Route: 065
  3. LACOSAMIDE [Concomitant]
     Active Substance: LACOSAMIDE
     Indication: Seizure
     Dosage: UNK
     Route: 065
  4. BICTEGRAVIR\EMTRICITABINE\TENOFOVIR ALAFENAMIDE [Concomitant]
     Active Substance: BICTEGRAVIR\EMTRICITABINE\TENOFOVIR ALAFENAMIDE
     Indication: HIV infection
     Dosage: UNK
     Route: 065

REACTIONS (4)
  - Multiple organ dysfunction syndrome [Fatal]
  - Torsade de pointes [Fatal]
  - Renal salt-wasting syndrome [Unknown]
  - Seizure [Unknown]
